FAERS Safety Report 9095257 (Version 1)
Quarter: 2013Q1

REPORT INFORMATION
  Report Type: Spontaneous
  Country: US (occurrence: None)
  Receive Date: 20130123
  Receipt Date: 20130123
  Transmission Date: 20140127
  Serious: Yes (Death)
  Sender: FDA-Public Use
  Company Number: 2012CP000085

PATIENT
  Age: 51 Year
  Sex: Female
  Weight: 107.5 kg

DRUGS (15)
  1. OFIRMEV [Suspect]
     Indication: PROCEDURAL PAIN
     Route: 042
     Dates: start: 20120720, end: 20120721
  2. PLACEBO [Suspect]
     Indication: PROCEDURAL PAIN
     Dates: start: 20120719, end: 20120720
  3. HYDROMORPHONE [Concomitant]
  4. ALBUTEROL [Concomitant]
  5. CIPROFLOXACIN [Concomitant]
  6. LORAZEPAM [Concomitant]
  7. ZOFRAN [Concomitant]
  8. OXYCODONE [Concomitant]
  9. ARIXTRA [Concomitant]
  10. FUROSEMIDE [Concomitant]
  11. CIPROFLOXACIN [Concomitant]
  12. LAMICTAL [Concomitant]
  13. LUNESTA [Concomitant]
  14. TRAZODONE [Concomitant]
  15. PREVACID [Concomitant]

REACTIONS (2)
  - Hypertrophic cardiomyopathy [None]
  - Bronchopneumonia [None]
